FAERS Safety Report 4429782-X (Version None)
Quarter: 2004Q3

REPORT INFORMATION
  Report Type: 
  Country: None (occurrence: None)
  Receive Date: 20040817
  Receipt Date: 20040805
  Transmission Date: 20050211
  Serious: Yes (Other)
  Sender: FDA-Public Use
  Company Number: HQWYE100909AUG04

PATIENT
  Age: 19 Year
  Sex: Female
  Weight: 83.99 kg

DRUGS (1)
  1. NORPLANT SYSTEM [Suspect]
     Indication: CONTRACEPTION
     Dosage: 6 CAPSULES, SUBCUTANEOUS
     Route: 058
     Dates: start: 20000801

REACTIONS (7)
  - ABORTION SPONTANEOUS [None]
  - APPLICATION SITE PAIN [None]
  - DRUG INEFFECTIVE [None]
  - DYSMENORRHOEA [None]
  - HYPERTRICHOSIS [None]
  - UNINTENDED PREGNANCY [None]
  - WEIGHT LOSS POOR [None]
